FAERS Safety Report 21757643 (Version 1)
Quarter: 2022Q4

REPORT INFORMATION
  Report Type: Spontaneous
  Country: US (occurrence: None)
  Receive Date: 20221221
  Receipt Date: 20221221
  Transmission Date: 20230113
  Serious: No
  Sender: FDA-Public Use
  Company Number: US-ROCHE-2785545

PATIENT
  Age: 91 Year
  Sex: Female
  Weight: 88.8 kg

DRUGS (1)
  1. ACTIVASE [Suspect]
     Active Substance: ALTEPLASE
     Indication: Ischaemic stroke
     Dosage: ONGOING- UNKNOWN
     Route: 065
     Dates: start: 20210304

REACTIONS (5)
  - Inappropriate schedule of product administration [Unknown]
  - Product quality issue [Unknown]
  - Product lot number issue [Unknown]
  - Poor quality product administered [Unknown]
  - No adverse event [Unknown]

NARRATIVE: CASE EVENT DATE: 20210304
